FAERS Safety Report 8806040 (Version 2)
Quarter: 2012Q4

REPORT INFORMATION
  Report Type: 
  Country: US (occurrence: US)
  Receive Date: 20120925
  Receipt Date: 20121025
  Transmission Date: 20130627
  Serious: No
  Sender: FDA-Public Use
  Company Number: US-PFIZER INC-2012235975

PATIENT
  Age: 56 Year
  Sex: Female

DRUGS (3)
  1. LIPITOR [Suspect]
     Indication: BLOOD CHOLESTEROL
     Dosage: 5 mg, 1x/day
     Dates: start: 20111102, end: 20120513
  2. LANTUS [Concomitant]
     Dosage: UNK
  3. NOVOLOG [Concomitant]
     Dosage: UNK

REACTIONS (1)
  - Myalgia [Recovered/Resolved]
